FAERS Safety Report 12811061 (Version 1)
Quarter: 2016Q4

REPORT INFORMATION
  Report Type: Report from Study
  Country: US (occurrence: US)
  Receive Date: 20161005
  Receipt Date: 20161005
  Transmission Date: 20170207
  Serious: Yes (Other)
  Sender: FDA-Public Use
  Company Number: US-BEH-2016073888

PATIENT
  Age: 23 Year
  Sex: Female

DRUGS (7)
  1. BLINDED ALBUMIN 5% [Suspect]
     Active Substance: ALBUMIN HUMAN
     Indication: CYTOMEGALOVIRUS INFECTION
     Dosage: 141.5 ML, QMT
     Route: 042
     Dates: start: 20160421, end: 20160713
  2. BLINDED ALBUMIN 5% [Suspect]
     Active Substance: ALBUMIN HUMAN
     Dosage: 141.5 ML, QMT
     Route: 042
  3. ALBUMINAR-5 [Suspect]
     Active Substance: ALBUMIN HUMAN
     Dosage: 141.5 ML, QMT
     Route: 042
  4. CYTOGAM [Suspect]
     Active Substance: HUMAN CYTOMEGALOVIRUS IMMUNE GLOBULIN
     Dosage: 141.5 ML, QMT
     Route: 042
  5. ALBUMINAR-5 [Suspect]
     Active Substance: ALBUMIN HUMAN
     Indication: CYTOMEGALOVIRUS INFECTION
     Dosage: 141.5 ML, QMT
     Route: 042
     Dates: start: 20160421, end: 20160713
  6. CYTOGAM [Suspect]
     Active Substance: HUMAN CYTOMEGALOVIRUS IMMUNE GLOBULIN
     Indication: CYTOMEGALOVIRUS INFECTION
     Dosage: 141.5 ML, QMT
     Route: 042
     Dates: start: 20160421, end: 20160713
  7. PRENATAL VITAMINS                  /02014401/ [Concomitant]
     Active Substance: VITAMINS
     Indication: PRENATAL CARE
     Route: 065

REACTIONS (5)
  - Premature delivery [Recovered/Resolved]
  - Premature labour [Recovered/Resolved]
  - Breech presentation [Recovered/Resolved]
  - Vaginal haemorrhage [Recovered/Resolved]
  - Exposure during pregnancy [Recovered/Resolved]

NARRATIVE: CASE EVENT DATE: 20160421
